FAERS Safety Report 6116883-3 (Version None)
Quarter: 2009Q1

REPORT INFORMATION
  Report Type: 
  Country: None (occurrence: None)
  Receive Date: 20090314
  Receipt Date: 20081230
  Transmission Date: 20090719
  Serious: No
  Sender: FDA-Public Use
  Company Number: US-ABBOTT-08P-163-0495372-00

PATIENT
  Sex: Male
  Weight: 72.64 kg

DRUGS (21)
  1. HUMIRA [Suspect]
     Indication: CROHN'S DISEASE
     Dates: start: 20081101
  2. ARICEPT [Concomitant]
     Indication: DIABETES MELLITUS
  3. ASACOL [Concomitant]
     Indication: DRUG USE FOR UNKNOWN INDICATION
     Dosage: 400MG X3 TAB TID
  4. ATENOLOL [Concomitant]
     Indication: BLOOD PRESSURE
  5. LASIX [Concomitant]
     Indication: DRUG USE FOR UNKNOWN INDICATION
  6. LASIX [Concomitant]
  7. LIPITOR [Concomitant]
     Indication: DRUG USE FOR UNKNOWN INDICATION
  8. M.V.I. [Concomitant]
     Indication: DRUG USE FOR UNKNOWN INDICATION
  9. PEROXETINE [Concomitant]
     Indication: DRUG USE FOR UNKNOWN INDICATION
  10. POTASSIUM CHLORIDE [Concomitant]
     Indication: DRUG USE FOR UNKNOWN INDICATION
  11. PREDNISONE [Concomitant]
     Indication: DRUG USE FOR UNKNOWN INDICATION
  12. OMEPARCOLE [Concomitant]
     Indication: DRUG USE FOR UNKNOWN INDICATION
     Dosage: 1
  13. VIT B COMPLEX [Concomitant]
     Indication: DRUG USE FOR UNKNOWN INDICATION
  14. AVANDIA [Concomitant]
     Indication: DRUG USE FOR UNKNOWN INDICATION
  15. GLIPIZIDE [Concomitant]
     Indication: DRUG USE FOR UNKNOWN INDICATION
     Dosage: AM 20MG AND AT NOON
  16. JANUVIA [Concomitant]
     Indication: DRUG USE FOR UNKNOWN INDICATION
  17. SLOW-FE [Concomitant]
     Indication: DRUG USE FOR UNKNOWN INDICATION
  18. CALCIUM CHLORIDE [Concomitant]
     Indication: DRUG USE FOR UNKNOWN INDICATION
  19. FOSAMAX [Concomitant]
     Indication: BONE DISORDER
  20. CALCIUM CITRATE [Concomitant]
     Indication: DRUG USE FOR UNKNOWN INDICATION
  21. LASIX [Concomitant]

REACTIONS (2)
  - INCORRECT DOSE ADMINISTERED [None]
  - WRONG TECHNIQUE IN DRUG USAGE PROCESS [None]
